FAERS Safety Report 4923598-3 (Version None)
Quarter: 2006Q1

REPORT INFORMATION
  Report Type: 
  Country: None (occurrence: None)
  Receive Date: 20060221
  Receipt Date: 20060209
  Transmission Date: 20060701
  Serious: Yes (Life-Threatening, Hospitalization)
  Sender: FDA-Public Use
  Company Number: 2006019649

PATIENT
  Age: 23 Year
  Sex: Female

DRUGS (1)
  1. DINOPROSTONE GEL (DINOPROSTONE) [Suspect]
     Indication: INDUCED LABOUR
     Dosage: ONCE, VAGINAL
     Route: 067
     Dates: start: 20051117, end: 20051117

REACTIONS (2)
  - DISSEMINATED INTRAVASCULAR COAGULATION [None]
  - HYSTERECTOMY [None]
